FAERS Safety Report 26194695 (Version 1)
Quarter: 2025Q4

REPORT INFORMATION
  Report Type: Spontaneous
  Country: US (occurrence: US)
  Receive Date: 20251224
  Receipt Date: 20251224
  Transmission Date: 20260118
  Serious: Yes (Other)
  Sender: MERCK SHARP & DOHME LLC
  Company Number: US-009507513-2363819

PATIENT
  Sex: Male

DRUGS (1)
  1. STROMECTOL [Suspect]
     Active Substance: IVERMECTIN
     Indication: Demodicidosis
     Dosage: PATIENTS WERE TREATED WITH A MEDIAN (RANGE) OF 2 (1-4) WEEKLY DOSES
     Route: 048

REACTIONS (4)
  - Mazzotti reaction [Unknown]
  - Inflammation [Unknown]
  - Face oedema [Unknown]
  - Product use in unapproved indication [Unknown]
